FAERS Safety Report 17236322 (Version 1)
Quarter: 2020Q1

REPORT INFORMATION
  Report Type: Spontaneous
  Country: US (occurrence: US)
  Receive Date: 20200103
  Receipt Date: 20200103
  Transmission Date: 20200409
  Serious: Yes (Disabling)
  Sender: FDA-Public Use
  Company Number: None

PATIENT
  Age: 24 Year
  Sex: Female
  Weight: 54 kg

DRUGS (2)
  1. RITE AID MAXIMUM STRENGTH NASAL SPRAY OXYMETAZOLINE HYDROCHLORIDE 0.05 [Suspect]
     Active Substance: OXYMETAZOLINE HYDROCHLORIDE
     Indication: NASAL CONGESTION
     Dates: start: 20200103, end: 20200103
  2. RITE AID MAXIMUM STRENGTH NASAL SPRAY OXYMETAZOLINE HYDROCHLORIDE 0.05 [Suspect]
     Active Substance: OXYMETAZOLINE HYDROCHLORIDE
     Indication: NASOPHARYNGITIS
     Dates: start: 20200103, end: 20200103

REACTIONS (7)
  - Throat irritation [None]
  - Hyperaesthesia teeth [None]
  - Thermal burn [None]
  - Ageusia [None]
  - Lacrimation increased [None]
  - Anosmia [None]
  - Device issue [None]

NARRATIVE: CASE EVENT DATE: 20200103
